FAERS Safety Report 12740554 (Version 1)
Quarter: 2016Q3

REPORT INFORMATION
  Report Type: Spontaneous
  Country: JP (occurrence: JP)
  Receive Date: 20160913
  Receipt Date: 20160913
  Transmission Date: 20161109
  Serious: Yes (Death, Other)
  Sender: FDA-Public Use
  Company Number: JP-ELI_LILLY_AND_COMPANY-JP201609003468

PATIENT
  Age: 85 Year
  Sex: Male

DRUGS (13)
  1. TRULICITY [Suspect]
     Active Substance: DULAGLUTIDE
     Indication: PRODUCT USED FOR UNKNOWN INDICATION
     Dosage: UNK, WEEKLY (1/W)
     Route: 058
     Dates: start: 20160726
  2. FERROUS SODIUM CITRATE [Concomitant]
     Active Substance: SODIUM FERROUS CITRATE
  3. LULICON [Concomitant]
  4. CERCINE [Concomitant]
     Active Substance: DIAZEPAM
  5. PRAVASTATIN. [Concomitant]
     Active Substance: PRAVASTATIN
  6. CILOSTAZOL. [Concomitant]
     Active Substance: CILOSTAZOL
  7. MOBIC [Concomitant]
     Active Substance: MELOXICAM
  8. SEIBULE [Concomitant]
     Active Substance: MIGLITOL
  9. ISOSORBIDE MONONITRATE. [Concomitant]
     Active Substance: ISOSORBIDE MONONITRATE
  10. ZOLPIDEM TARTRATE. [Concomitant]
     Active Substance: ZOLPIDEM TARTRATE
  11. CLOPIDOGREL BISULFATE. [Concomitant]
     Active Substance: CLOPIDOGREL BISULFATE
  12. URIEF [Concomitant]
     Active Substance: SILODOSIN
  13. NEXIUM [Concomitant]
     Active Substance: ESOMEPRAZOLE MAGNESIUM

REACTIONS (2)
  - Aspiration [Unknown]
  - Asphyxia [Fatal]
